FAERS Safety Report 5325907-2 (Version None)
Quarter: 2007Q2

REPORT INFORMATION
  Report Type: 
  Country: None (occurrence: None)
  Receive Date: 20070220
  Receipt Date: 20061207
  Transmission Date: 20071010
  Serious: No
  Sender: FDA-Public Use
  Company Number: WAES 0612USA01316

PATIENT
  Age: 43 Year
  Sex: Female

DRUGS (3)
  1. JANUVIA [Suspect]
     Indication: DIABETES MELLITUS NON-INSULIN-DEPENDENT
     Dosage: PO
     Route: 048
     Dates: start: 20061115, end: 20061207
  2. NEXIUM [Concomitant]
  3. MULTI-VITAMINS [Concomitant]

REACTIONS (2)
  - NASAL CONGESTION [None]
  - PHARYNGOLARYNGEAL PAIN [None]
